FAERS Safety Report 21762732 (Version 1)
Quarter: 2022Q4

REPORT INFORMATION
  Report Type: Spontaneous
  Country: FR (occurrence: FR)
  Receive Date: 20221221
  Receipt Date: 20221221
  Transmission Date: 20230113
  Serious: Yes (Hospitalization)
  Sender: FDA-Public Use
  Company Number: None

PATIENT
  Age: 18 Day
  Sex: Male
  Weight: 4.26 kg

DRUGS (1)
  1. ACYCLOVIR [Suspect]
     Active Substance: ACYCLOVIR
     Indication: Herpes simplex
     Dosage: 20 MILLIGRAM/KILOGRAM, Q8H
     Route: 042
     Dates: start: 20220829, end: 20220912

REACTIONS (1)
  - Necrotising colitis [Recovering/Resolving]

NARRATIVE: CASE EVENT DATE: 20220915
